FAERS Safety Report 22539292 (Version 2)
Quarter: 2024Q2

REPORT INFORMATION
  Report Type: Report from Study
  Country: IT (occurrence: IT)
  Receive Date: 20230609
  Receipt Date: 20240614
  Transmission Date: 20240716
  Serious: Yes (Other)
  Sender: FDA-Public Use
  Company Number: None

PATIENT
  Age: 69 Year
  Sex: Female
  Weight: 75 kg

DRUGS (1)
  1. PACLITAXEL [Suspect]
     Active Substance: PACLITAXEL
     Indication: Ovarian cancer
     Dosage: TIME INTERVAL: CYCLICAL: DOSAGE TEXT: DOSAGE PACLITAXEL 175MG/M2. DOSE: 320MG Q3W, PACLITAXEL TEVA
     Route: 065
     Dates: start: 20230515, end: 20230515

REACTIONS (2)
  - Throat tightness [Recovered/Resolved]
  - Flushing [Recovered/Resolved]

NARRATIVE: CASE EVENT DATE: 20230515
